FAERS Safety Report 5915237-X (Version None)
Quarter: 2008Q4

REPORT INFORMATION
  Report Type: 
  Country: None (occurrence: None)
  Receive Date: 20081010
  Receipt Date: 20080930
  Transmission Date: 20090506
  Serious: Yes (Hospitalization)
  Sender: FDA-Public Use
  Company Number: FR-JNJFOC-20081001893

PATIENT
  Sex: Female

DRUGS (4)
  1. TOPALGIC [Suspect]
     Indication: PAIN
     Route: 048
  2. LOVENOX [Suspect]
     Indication: THROMBOSIS PROPHYLAXIS
     Route: 058
  3. ORBENINE [Suspect]
     Indication: BULLOUS IMPETIGO
     Route: 042
  4. DALACIN [Suspect]
     Indication: BULLOUS IMPETIGO
     Route: 042

REACTIONS (2)
  - DRUG RASH WITH EOSINOPHILIA AND SYSTEMIC SYMPTOMS [None]
  - FACE OEDEMA [None]
